FAERS Safety Report 21697332 (Version 1)
Quarter: 2022Q4

REPORT INFORMATION
  Report Type: Report from Study
  Country: US (occurrence: US)
  Receive Date: 20221208
  Receipt Date: 20221208
  Transmission Date: 20230113
  Serious: No
  Sender: FDA-Public Use
  Company Number: US-ABBVIE-4184908

PATIENT
  Sex: Male

DRUGS (16)
  1. DUOPA [Suspect]
     Active Substance: CARBIDOPA\LEVODOPA
     Indication: Product used for unknown indication
     Route: 050
     Dates: start: 20220125
  2. DUOPA [Suspect]
     Active Substance: CARBIDOPA\LEVODOPA
  3. Ipratropium bromide (Ipratropium bromide) [Concomitant]
     Indication: Product used for unknown indication
     Dosage: 1 INH PRN
  4. IBUPROFEN [Concomitant]
     Active Substance: IBUPROFEN
     Indication: Product used for unknown indication
     Dosage: 100 MG/5ML?1 CAP PRN
     Route: 048
  5. DICLOFENAC [Concomitant]
     Active Substance: DICLOFENAC
     Indication: Product used for unknown indication
     Dosage: 1% GEL? 1 APP PRN
     Route: 061
  6. MELATONIN [Concomitant]
     Active Substance: MELATONIN
     Indication: Product used for unknown indication
     Dosage: 10MG?1 CAP HSP
     Route: 048
  7. MYRBETRIQ [Concomitant]
     Active Substance: MIRABEGRON
     Indication: Product used for unknown indication
     Dosage: 50MG? 1 TAB DAILY
     Route: 048
  8. INBRIJA [Concomitant]
     Active Substance: LEVODOPA
     Indication: Product used for unknown indication
     Dosage: 42MG? 2 CAP PRN
     Route: 048
  9. Rytary (Carbidopa;Levodopa) [Concomitant]
     Indication: Product used for unknown indication
     Dosage: 23.75-95MG? 1 DOSE QAM
     Route: 048
  10. LORAZEPAM [Concomitant]
     Active Substance: LORAZEPAM
     Indication: Product used for unknown indication
     Dosage: 0.5MG?1 DOSE PRN
     Route: 048
  11. Carbidopa/levodopa (Carbidopa;Levodopa) [Concomitant]
     Indication: Product used for unknown indication
     Dosage: 50-200MG?1 TAB DAILY
     Route: 048
  12. Systane (Macrogol 400;Propylene glycol) [Concomitant]
     Indication: Product used for unknown indication
     Dosage: 0.3 %-0.4% DROPS?1 GTT PRN
  13. Dofetilide (Dofetilide) [Concomitant]
     Indication: Product used for unknown indication
     Dosage: 500MCG?1 CAP BID
     Route: 048
  14. MIRTAZAPINE [Concomitant]
     Active Substance: MIRTAZAPINE
     Indication: Product used for unknown indication
     Dosage: 7.5MG?1 TAB DAILY
     Route: 048
  15. ELIQUIS [Concomitant]
     Active Substance: APIXABAN
     Indication: Product used for unknown indication
     Dosage: 5MG?1 TAB DAILY
     Route: 048
  16. DONEPEZIL HYDROCHLORIDE [Concomitant]
     Active Substance: DONEPEZIL HYDROCHLORIDE
     Indication: Product used for unknown indication
     Dosage: 10MG? 1 TAB DAILY
     Route: 048

REACTIONS (1)
  - COVID-19 [Unknown]
